FAERS Safety Report 6371625-1 (Version None)
Quarter: 2009Q3

REPORT INFORMATION
  Report Type: 
  Country: None (occurrence: None)
  Receive Date: 20090923
  Receipt Date: 20090114
  Transmission Date: 20100115
  Serious: Yes (Hospitalization)
  Sender: FDA-Public Use
  Company Number: US-ASTRAZENECA-2008UW00350

PATIENT
  Age: 17710 Day
  Sex: Female
  Weight: 99.8 kg

DRUGS (3)
  1. SEROQUEL [Suspect]
     Indication: BIPOLAR DISORDER
     Route: 048
  2. SEROQUEL [Suspect]
     Dosage: 200MG TO 1200MG
     Route: 048
     Dates: start: 20040901, end: 20071101
  3. LIPITOR [Concomitant]
     Dates: start: 20060101

REACTIONS (3)
  - BLOOD CHOLESTEROL INCREASED [None]
  - DIABETES MELLITUS [None]
  - DIABETIC COMA [None]
